FAERS Safety Report 7233540-0 (Version None)
Quarter: 2011Q1

REPORT INFORMATION
  Report Type: 
  Country: None (occurrence: None)
  Receive Date: 20110113
  Receipt Date: 20110113
  Transmission Date: 20110831
  Serious: Yes (Hospitalization)
  Sender: FDA-Public Use
  Company Number: None

PATIENT
  Sex: Male
  Weight: 96.6 kg

DRUGS (9)
  1. OMEPRAZOLE [Concomitant]
  2. PRILOSEC [Concomitant]
  3. TARCEVA [Suspect]
     Dosage: 100 MG
  4. CLONAZEPAM [Concomitant]
  5. NIASPAN [Concomitant]
  6. CREON [Concomitant]
  7. CARBIDOPA AND LEVODOPA [Concomitant]
  8. GEMCITABINE HYDROCHLORIDE [Suspect]
     Dosage: 1600 MG
  9. HUMULIN R [Concomitant]

REACTIONS (2)
  - PULMONARY EMBOLISM [None]
  - SYNCOPE [None]
